FAERS Safety Report 6223685-6 (Version None)
Quarter: 2009Q2

REPORT INFORMATION
  Report Type: 
  Country: None (occurrence: None)
  Receive Date: 20090611
  Receipt Date: 20090422
  Transmission Date: 20091009
  Serious: No
  Sender: FDA-Public Use
  Company Number: US-ABBOTT-08P-163-0482091-00

PATIENT
  Sex: Female

DRUGS (8)
  1. HUMIRA [Suspect]
     Indication: PSORIATIC ARTHROPATHY
     Route: 058
     Dates: start: 20080501, end: 20080701
  2. HUMIRA [Suspect]
     Route: 058
     Dates: start: 20080701, end: 20080801
  3. HUMIRA [Suspect]
     Route: 058
     Dates: start: 20080901
  4. ATARAX [Concomitant]
     Indication: DRUG USE FOR UNKNOWN INDICATION
  5. MEDOL [Concomitant]
     Indication: DRUG USE FOR UNKNOWN INDICATION
     Dosage: ALTERNALTE DOSING
     Route: 048
     Dates: start: 20080701
  6. ALDACTAZIDE [Concomitant]
     Indication: DIURETIC THERAPY
     Route: 048
  7. FLEXERIL [Concomitant]
     Indication: MYALGIA
     Route: 048
  8. TRICOR [Concomitant]
     Indication: DRUG USE FOR UNKNOWN INDICATION

REACTIONS (2)
  - FEELING ABNORMAL [None]
  - INJECTION SITE REACTION [None]
